FAERS Safety Report 6533350-3 (Version None)
Quarter: 2010Q1

REPORT INFORMATION
  Report Type: 
  Country: None (occurrence: None)
  Receive Date: 20100111
  Receipt Date: 20100106
  Transmission Date: 20100710
  Serious: Yes (Hospitalization)
  Sender: FDA-Public Use
  Company Number: B0623754A

PATIENT
  Age: 58 Year
  Sex: Female

DRUGS (1)
  1. AUGMENTIN [Suspect]
     Indication: PYELONEPHRITIS
     Dosage: 1G FOUR TIMES PER DAY
     Route: 048
     Dates: start: 20081006, end: 20081014

REACTIONS (7)
  - EYELID OEDEMA [None]
  - LIP OEDEMA [None]
  - OEDEMA MUCOSAL [None]
  - PRURITUS [None]
  - RASH MACULAR [None]
  - RASH PAPULAR [None]
  - TOXIC SKIN ERUPTION [None]
